FAERS Safety Report 5960080-9 (Version None)
Quarter: 2008Q4

REPORT INFORMATION
  Report Type: 
  Country: None (occurrence: None)
  Receive Date: 20081119
  Receipt Date: 20081119
  Transmission Date: 20090506
  Serious: No
  Sender: FDA-Public Use
  Company Number: None

PATIENT
  Age: 44 Year
  Sex: Male
  Weight: 84 kg

DRUGS (5)
  1. HUMULIN 70/30 [Suspect]
     Indication: TYPE 1 DIABETES MELLITUS
     Dosage: 40U EVERY AM 20U EVERY PM
     Dates: start: 20080726, end: 20080728
  2. NICOTINE [Concomitant]
  3. ZOSYN [Concomitant]
  4. BACTRIM [Concomitant]
  5. VANCOMYCIN [Concomitant]

REACTIONS (5)
  - BLOOD GLUCOSE DECREASED [None]
  - DIZZINESS [None]
  - HYPERHIDROSIS [None]
  - TREATMENT NONCOMPLIANCE [None]
  - TREMOR [None]
